FAERS Safety Report 9543918 (Version 1)
Quarter: 2013Q3

REPORT INFORMATION
  Report Type: Spontaneous
  Country: JP (occurrence: JP)
  Receive Date: 20130923
  Receipt Date: 20130923
  Transmission Date: 20140515
  Serious: Yes (Other)
  Sender: FDA-Public Use
  Company Number: JP-ROXANE LABORATORIES, INC.-2013-RO-01543RO

PATIENT
  Age: 43 Year
  Sex: Female

DRUGS (14)
  1. CYCLOPHOSPHAMIDE TABLETS USP [Suspect]
     Indication: BREAST CANCER
     Route: 048
  2. LETROZOLE [Suspect]
     Indication: METASTASES TO BONE
     Dosage: 2.5 MG
  3. EXEMESTANE [Suspect]
     Indication: METASTASES TO BONE
     Dosage: 25 MG
  4. DEXAMETHASONE [Suspect]
     Indication: PREMEDICATION
     Dosage: 8 MG
  5. DEXAMETHASONE [Suspect]
  6. PACLITAXEL [Suspect]
     Indication: BREAST CANCER
     Route: 042
  7. NAB-PACLITAXEL [Suspect]
     Indication: BREAST CANCER
     Route: 042
  8. DOXORUBICIN [Suspect]
     Indication: BREAST CANCER
  9. 5-FLUOROURACIL [Suspect]
     Indication: BREAST CANCER
  10. TAMOXIFEN [Suspect]
     Indication: BREAST CANCER
     Dosage: 20 MG
  11. ZOLEDRONIC ACID [Suspect]
     Indication: METASTASES TO BONE
  12. GEMCITABINE [Suspect]
     Indication: DISEASE PROGRESSION
  13. RANITIDINE [Suspect]
     Indication: PREMEDICATION
  14. DIPHENHYDRAMINE [Suspect]
     Indication: PREMEDICATION

REACTIONS (5)
  - Metastases to bone [Unknown]
  - Disease progression [Unknown]
  - Peripheral sensory neuropathy [Unknown]
  - Neutropenia [Unknown]
  - Hypersensitivity [Unknown]
